FAERS Safety Report 17643481 (Version 1)
Quarter: 2020Q2

REPORT INFORMATION
  Report Type: Spontaneous
  Country: US (occurrence: US)
  Receive Date: 20200407
  Receipt Date: 20200407
  Transmission Date: 20200713
  Serious: Yes (Hospitalization, Disabling, Other)
  Sender: FDA-Public Use
  Company Number: None

PATIENT
  Age: 26 Year
  Sex: Female
  Weight: 57.15 kg

DRUGS (5)
  1. VITAMIN C [Concomitant]
     Active Substance: ASCORBIC ACID
  2. IRON SUPPLEMENTS [Concomitant]
     Active Substance: IRON
  3. SERTRALINE [Concomitant]
     Active Substance: SERTRALINE HYDROCHLORIDE
  4. VITAMIN D [Concomitant]
     Active Substance: VITAMIN D NOS
  5. PARAGARD T 380A [Suspect]
     Active Substance: COPPER

REACTIONS (10)
  - Syncope [None]
  - Device dislocation [None]
  - Complication of device removal [None]
  - Loss of consciousness [None]
  - Uterine pain [None]
  - Oligomenorrhoea [None]
  - Vaginal haemorrhage [None]
  - Device breakage [None]
  - Dysmenorrhoea [None]
  - Complication associated with device [None]

NARRATIVE: CASE EVENT DATE: 20200327
